FAERS Safety Report 8545937-7 (Version None)
Quarter: 2012Q3

REPORT INFORMATION
  Report Type: 
  Country: None (occurrence: None)
  Receive Date: 20120727
  Receipt Date: 20111122
  Transmission Date: 20120928
  Serious: No
  Sender: FDA-Public Use
  Company Number: US-ASTRAZENECA-2011SE71176

PATIENT
  Age: 41 Year
  Sex: Female
  Weight: 65.3 kg

DRUGS (3)
  1. SEROQUEL [Suspect]
     Indication: OBSESSIVE-COMPULSIVE DISORDER
     Route: 048
  2. LEXAPRO [Concomitant]
     Indication: DEPRESSION
  3. SEROQUEL [Suspect]
     Indication: DEPRESSION
     Route: 048

REACTIONS (3)
  - WEIGHT DECREASED [None]
  - DRUG DOSE OMISSION [None]
  - MALAISE [None]
